FAERS Safety Report 4981135-1 (Version None)
Quarter: 2006Q2

REPORT INFORMATION
  Report Type: 
  Country: None (occurrence: None)
  Receive Date: 20060418
  Receipt Date: 20060329
  Transmission Date: 20061013
  Serious: Yes (Other)
  Sender: FDA-Public Use
  Company Number: US200511002926

PATIENT
  Sex: Female

DRUGS (3)
  1. FORTEO [Suspect]
     Dates: start: 20050801
  2. FORTEO [Concomitant]
  3. PROCRIT [Concomitant]

REACTIONS (10)
  - BODY TEMPERATURE INCREASED [None]
  - BONE DISORDER [None]
  - BURSA DISORDER [None]
  - INJECTION SITE ERYTHEMA [None]
  - INJECTION SITE RASH [None]
  - LOCALISED INFECTION [None]
  - PAIN [None]
  - PHARMACEUTICAL PRODUCT COMPLAINT [None]
  - POST PROCEDURAL COMPLICATION [None]
  - SOMNOLENCE [None]
